FAERS Safety Report 15353556 (Version 1)
Quarter: 2018Q3

REPORT INFORMATION
  Report Type: Spontaneous
  Country: US (occurrence: US)
  Receive Date: 20180905
  Receipt Date: 20180905
  Transmission Date: 20181010
  Serious: No
  Sender: FDA-Public Use
  Company Number: US-ELI_LILLY_AND_COMPANY-US201808013557

PATIENT
  Age: 37 Year
  Sex: Female

DRUGS (3)
  1. HUMIRA [Suspect]
     Active Substance: ADALIMUMAB
     Indication: RHEUMATOID ARTHRITIS
     Dosage: 40 MG, 2/M
     Route: 058
     Dates: start: 20180508
  2. CYMBALTA [Suspect]
     Active Substance: DULOXETINE HYDROCHLORIDE
     Indication: PRODUCT USED FOR UNKNOWN INDICATION
  3. LEFLUNOMIDE. [Suspect]
     Active Substance: LEFLUNOMIDE
     Indication: PRODUCT USED FOR UNKNOWN INDICATION
     Dosage: UNK
     Dates: end: 201806

REACTIONS (14)
  - Depression [Unknown]
  - Injection site pain [Unknown]
  - Skin exfoliation [Unknown]
  - Headache [Recovered/Resolved]
  - Arthralgia [Unknown]
  - Fatigue [Unknown]
  - Furuncle [Unknown]
  - Joint swelling [Unknown]
  - Anaemia [Unknown]
  - Joint stiffness [Unknown]
  - Nausea [Recovered/Resolved]
  - Gait disturbance [Unknown]
  - Dry skin [Unknown]
  - Back pain [Unknown]

NARRATIVE: CASE EVENT DATE: 201805
